FAERS Safety Report 7914946-0 (Version None)
Quarter: 2011Q4

REPORT INFORMATION
  Report Type: 
  Country: None (occurrence: None)
  Receive Date: 20111115
  Receipt Date: 20111113
  Transmission Date: 20120403
  Serious: No
  Sender: FDA-Public Use
  Company Number: US-B.I. PHARMACEUTICALS,INC./RIDGEFIELD-2011-BP-26155BP

PATIENT
  Sex: Male

DRUGS (5)
  1. BENAZEPRIL HYDROCHLORIDE [Concomitant]
     Indication: HYPERTENSION
     Route: 048
  2. SPIRIVA [Suspect]
     Indication: CHRONIC OBSTRUCTIVE PULMONARY DISEASE
     Dosage: 18 MCG
     Route: 055
     Dates: start: 20111003
  3. SPIRIVA [Suspect]
     Indication: BRONCHITIS CHRONIC
  4. VITAMIN TAB [Concomitant]
  5. ASPIRIN [Concomitant]

REACTIONS (9)
  - CHROMATURIA [None]
  - EYE SWELLING [None]
  - EYE DISCHARGE [None]
  - BRONCHOSPASM [None]
  - VISION BLURRED [None]
  - PRURITUS [None]
  - OCULAR HYPERAEMIA [None]
  - URINE FLOW DECREASED [None]
  - BLOOD PRESSURE INCREASED [None]
